FAERS Safety Report 8317319-4 (Version None)
Quarter: 2012Q2

REPORT INFORMATION
  Report Type: 
  Country: None (occurrence: None)
  Receive Date: 20120427
  Receipt Date: 20120419
  Transmission Date: 20120825
  Serious: Yes (Hospitalization)
  Sender: FDA-Public Use
  Company Number: US-ASTELLAS-2011US005592

PATIENT
  Sex: Male
  Weight: 68 kg

DRUGS (1)
  1. TACROLIMUS [Suspect]
     Indication: DERMATITIS ATOPIC
     Dosage: 0.1 %, UNKNOWN/D
     Route: 061
     Dates: start: 20090417

REACTIONS (3)
  - SEPSIS [None]
  - PHARYNGITIS STREPTOCOCCAL [None]
  - HYPERTENSION [None]
